FAERS Safety Report 25740334 (Version 1)
Quarter: 2025Q3

REPORT INFORMATION
  Report Type: Spontaneous
  Country: US (occurrence: US)
  Receive Date: 20250829
  Receipt Date: 20250829
  Transmission Date: 20251020
  Serious: No
  Sender: PFIZER
  Company Number: US-PFIZER INC-202500171582

PATIENT

DRUGS (2)
  1. NURTEC ODT [Suspect]
     Active Substance: RIMEGEPANT SULFATE
  2. INVEGA [Suspect]
     Active Substance: PALIPERIDONE
     Indication: Depression

REACTIONS (4)
  - Hypoacusis [Unknown]
  - Hyperhidrosis [Unknown]
  - Pyrexia [Unknown]
  - Eating disorder [Unknown]
